FAERS Safety Report 8385808-2 (Version None)
Quarter: 2012Q2

REPORT INFORMATION
  Report Type: 
  Country: None (occurrence: None)
  Receive Date: 20120525
  Receipt Date: 20120521
  Transmission Date: 20120825
  Serious: Yes (Life-Threatening, Hospitalization)
  Sender: FDA-Public Use
  Company Number: US-BAYER-2012-023780

PATIENT
  Age: 43 Year
  Sex: Female
  Weight: 72.1 kg

DRUGS (3)
  1. DROSPIRENONE AND ETHINYL ESTRADIOL [Suspect]
     Dosage: UNK
     Dates: start: 20070201, end: 20100101
  2. YAZ [Suspect]
     Dosage: UNK
     Route: 048
     Dates: start: 20070201, end: 20100101
  3. YASMIN [Suspect]
     Dosage: UNK
     Route: 048
     Dates: start: 20070201, end: 20100101

REACTIONS (8)
  - INJURY [None]
  - PULMONARY EMBOLISM [None]
  - PAIN [None]
  - RENAL FAILURE ACUTE [None]
  - ANXIETY [None]
  - EMOTIONAL DISTRESS [None]
  - DYSPNOEA [None]
  - GENERAL PHYSICAL HEALTH DETERIORATION [None]
